FAERS Safety Report 21185292 (Version 2)
Quarter: 2022Q3

REPORT INFORMATION
  Report Type: Report from Study
  Country: US (occurrence: US)
  Receive Date: 20220808
  Receipt Date: 20220824
  Transmission Date: 20221027
  Serious: Yes (Hospitalization, Other)
  Sender: FDA-Public Use
  Company Number: US-BRISTOL-MYERS SQUIBB COMPANY-2022-083604

PATIENT
  Age: 72 Year
  Sex: Female
  Weight: 69.399 kg

DRUGS (5)
  1. ELIQUIS [Suspect]
     Active Substance: APIXABAN
     Indication: Cerebrovascular accident prophylaxis
     Route: 048
     Dates: start: 20220719, end: 202207
  2. ELIQUIS [Suspect]
     Active Substance: APIXABAN
     Route: 048
  3. CARDIZEM [Suspect]
     Active Substance: DILTIAZEM HYDROCHLORIDE
     Indication: Product used for unknown indication
     Route: 065
  4. PROPRANOLOL [Suspect]
     Active Substance: PROPRANOLOL HYDROCHLORIDE
     Indication: Product used for unknown indication
     Route: 065
  5. SYNTHROID [Concomitant]
     Active Substance: LEVOTHYROXINE SODIUM
     Indication: Product used for unknown indication
     Route: 065

REACTIONS (26)
  - Atrial fibrillation [Unknown]
  - Anal incontinence [Unknown]
  - Hypoaesthesia [Unknown]
  - Visual impairment [Recovering/Resolving]
  - Gait disturbance [Unknown]
  - Chest discomfort [Unknown]
  - Oropharyngeal pain [Unknown]
  - Dysgeusia [Unknown]
  - Dry mouth [Unknown]
  - Eye pain [Unknown]
  - Nightmare [Unknown]
  - Tremor [Unknown]
  - Headache [Unknown]
  - Amnesia [Unknown]
  - Musculoskeletal stiffness [Unknown]
  - Insomnia [Unknown]
  - Tooth abscess [Unknown]
  - Stress [Unknown]
  - Anxiety [Unknown]
  - Abdominal distension [Unknown]
  - Photosensitivity reaction [Unknown]
  - Contusion [Unknown]
  - Nausea [Unknown]
  - Illness [Unknown]
  - Head injury [Unknown]
  - Treatment noncompliance [Unknown]

NARRATIVE: CASE EVENT DATE: 20220701
